FAERS Safety Report 11162554 (Version 2)
Quarter: 2015Q2

REPORT INFORMATION
  Report Type: Spontaneous
  Country: US (occurrence: US)
  Receive Date: 20150604
  Receipt Date: 20150612
  Transmission Date: 20150821
  Serious: No
  Sender: FDA-Public Use
  Company Number: US-SA-2015SA053297

PATIENT
  Age: 72 Year
  Sex: Female
  Weight: 55.79 kg

DRUGS (14)
  1. LANTUS [Suspect]
     Active Substance: INSULIN GLARGINE
     Route: 065
  2. SYNTHROID [Concomitant]
     Active Substance: LEVOTHYROXINE SODIUM
  3. TOUJEO [Suspect]
     Active Substance: INSULIN GLARGINE
     Dosage: DOSE:13 UNIT(S)
     Route: 065
     Dates: start: 20150414, end: 20150418
  4. CRESTOR [Concomitant]
     Active Substance: ROSUVASTATIN CALCIUM
  5. ASPIRIN. [Concomitant]
     Active Substance: ASPIRIN
  6. HUMALOG [Concomitant]
     Active Substance: INSULIN LISPRO
  7. BENICAR [Concomitant]
     Active Substance: OLMESARTAN MEDOXOMIL
  8. TOUJEO [Suspect]
     Active Substance: INSULIN GLARGINE
     Dosage: DOSE:14 UNIT(S)
     Route: 065
     Dates: start: 20150419, end: 20150420
  9. SOLOSTAR U300 [Concomitant]
  10. VITAMIN D [Concomitant]
     Active Substance: CHOLECALCIFEROL
     Dosage: DOSE:2000 UNIT(S)
  11. TOUJEO [Suspect]
     Active Substance: INSULIN GLARGINE
     Dosage: DOSE:11 UNIT(S)
     Route: 065
     Dates: start: 20150409, end: 20150413
  12. OMEPRAZOLE. [Concomitant]
     Active Substance: OMEPRAZOLE
  13. LANTUS [Suspect]
     Active Substance: INSULIN GLARGINE
     Dosage: DOSE:30 UNIT(S)
     Route: 065
  14. ACYCLOVIR. [Concomitant]
     Active Substance: ACYCLOVIR

REACTIONS (7)
  - Rhinorrhoea [Unknown]
  - Hearing impaired [Unknown]
  - Drug ineffective [Unknown]
  - Ear congestion [Unknown]
  - Blood glucose abnormal [Unknown]
  - Nasopharyngitis [Unknown]
  - Blood glucose increased [Unknown]
